FAERS Safety Report 6724454-0 (Version None)
Quarter: 2010Q2

REPORT INFORMATION
  Report Type: 
  Country: None (occurrence: None)
  Receive Date: 20100513
  Receipt Date: 20100507
  Transmission Date: 20101027
  Serious: Yes (Other)
  Sender: FDA-Public Use
  Company Number: US-ALLERGAN-1006031US

PATIENT
  Age: 71 Year
  Sex: Female

DRUGS (6)
  1. BOTOX [Suspect]
     Indication: TORTICOLLIS
     Dosage: 230 UNITS, SINGLE
     Route: 030
     Dates: start: 20100409, end: 20100409
  2. BOTOX [Suspect]
     Dosage: 230 UNITS, SINGLE
     Dates: start: 20100409, end: 20100409
  3. BOTOX [Suspect]
     Dosage: UNK
     Dates: start: 20091204, end: 20091204
  4. BOTOX [Suspect]
     Dosage: UNK
     Dates: start: 20090601, end: 20090601
  5. BOTOX [Suspect]
     Dosage: UNK
     Dates: start: 20080801, end: 20080801
  6. BOTOX [Suspect]
     Dosage: UNK

REACTIONS (9)
  - CHILLS [None]
  - DYSPHAGIA [None]
  - DYSPNOEA EXERTIONAL [None]
  - HEART RATE INCREASED [None]
  - INFLUENZA LIKE ILLNESS [None]
  - MUSCULAR WEAKNESS [None]
  - MUSCULOSKELETAL DISORDER [None]
  - NAUSEA [None]
  - PALPITATIONS [None]
